FAERS Safety Report 10231518 (Version 2)
Quarter: 2014Q2

REPORT INFORMATION
  Report Type: Spontaneous
  Country: US (occurrence: US)
  Receive Date: 20140611
  Receipt Date: 20140611
  Transmission Date: 20141212
  Serious: No
  Sender: FDA-Public Use
  Company Number: US-MYLANLABS-2014S1004343

PATIENT
  Age: 67 Year
  Sex: Male
  Weight: 77.11 kg

DRUGS (1)
  1. VALACYCLOVIR TABLETS [Suspect]
     Indication: HERPES ZOSTER
     Route: 048
     Dates: start: 20140220, end: 20140222

REACTIONS (2)
  - Drug ineffective [Recovered/Resolved]
  - Herpes zoster [Recovered/Resolved]
